FAERS Safety Report 7480822-3 (Version None)
Quarter: 2011Q2

REPORT INFORMATION
  Report Type: 
  Country: None (occurrence: None)
  Receive Date: 20110512
  Receipt Date: 20110512
  Transmission Date: 20111010
  Serious: Yes (Other)
  Sender: FDA-Public Use
  Company Number: None

PATIENT
  Age: 63 Year
  Sex: Female
  Weight: 95.2554 kg

DRUGS (1)
  1. ARTHROTEC [Suspect]
     Indication: ARTHRITIS
     Dosage: 50MG -200 1 TAB BY MOUTH TWICE A DAY WITH FOOD AS NEEDED 1 2X DAY
     Dates: start: 20110310, end: 20110313

REACTIONS (4)
  - RASH PRURITIC [None]
  - NAUSEA [None]
  - URTICARIA [None]
  - RASH ERYTHEMATOUS [None]
